FAERS Safety Report 25071668 (Version 2)
Quarter: 2025Q1

REPORT INFORMATION
  Report Type: Report from Study
  Country: US (occurrence: US)
  Receive Date: 20250313
  Receipt Date: 20250329
  Transmission Date: 20250408
  Serious: Yes (Other)
  Sender: ABBVIE
  Company Number: US-ABBVIE-6166969

PATIENT
  Age: 75 Year
  Sex: Female
  Weight: 69.853 kg

DRUGS (4)
  1. RINVOQ [Suspect]
     Active Substance: UPADACITINIB
     Indication: Rheumatoid arthritis
     Dosage: FORM STRENGTH: 15 MILLIGRAM
     Route: 048
     Dates: start: 20241231, end: 20250313
  2. GABAPENTIN [Concomitant]
     Active Substance: GABAPENTIN
     Indication: Neuropathy peripheral
     Dosage: 300 MILLIGRAM
  3. FOLIC ACID [Concomitant]
     Active Substance: FOLIC ACID
     Indication: Polyarthritis
     Dosage: 1 MILLIGRAM
  4. METHOTREXATE [Concomitant]
     Active Substance: METHOTREXATE
     Indication: Polyarthritis
     Route: 048

REACTIONS (4)
  - Pelvic fracture [Recovering/Resolving]
  - Diarrhoea [Unknown]
  - Fall [Unknown]
  - Back disorder [Unknown]

NARRATIVE: CASE EVENT DATE: 20250101
